FAERS Safety Report 8880315 (Version 2)
Quarter: 2012Q4

REPORT INFORMATION
  Report Type: 
  Country: FR (occurrence: FR)
  Receive Date: 20121101
  Receipt Date: 20121111
  Transmission Date: 20130627
  Serious: Yes (Hospitalization, Other)
  Sender: FDA-Public Use
  Company Number: PHHO2012FR003462

PATIENT
  Age: 61 Year
  Sex: Male
  Weight: 98 kg

DRUGS (4)
  1. NEORAL [Suspect]
     Indication: RENAL TRANSPLANT
     Dosage: 800 mg, QD
     Route: 048
     Dates: start: 20120213, end: 20120416
  2. CELLCEPT [Suspect]
     Indication: TRANSPLANT REJECTION
     Dosage: 3 g, QD
     Route: 048
     Dates: start: 20120213, end: 20120416
  3. SOLUPRED [Suspect]
     Indication: TRANSPLANT REJECTION
     Dosage: 5 mg, QD
     Route: 048
     Dates: start: 20120221, end: 20120418
  4. SOLU-MEDROL [Concomitant]
     Indication: TRANSPLANT REJECTION
     Dosage: 90 mg, QD
     Route: 042
     Dates: start: 20120214, end: 201202

REACTIONS (7)
  - Arterial rupture [Recovered/Resolved]
  - Escherichia sepsis [Recovered/Resolved]
  - Enterococcal infection [Recovered/Resolved]
  - Complications of transplanted kidney [Recovered/Resolved]
  - Renal impairment [Recovered/Resolved]
  - Graft thrombosis [Recovered/Resolved]
  - Perirenal haematoma [Recovered/Resolved]
